FAERS Safety Report 8791645 (Version 2)
Quarter: 2012Q4

REPORT INFORMATION
  Report Type: 
  Country: US (occurrence: US)
  Receive Date: 20120918
  Receipt Date: 20120925
  Transmission Date: 20130627
  Serious: Yes (Other)
  Sender: FDA-Public Use
  Company Number: US-PFIZER INC-2012227905

PATIENT
  Age: 55 Year
  Sex: Female
  Weight: 45.35 kg

DRUGS (2)
  1. PROTONIX [Suspect]
     Indication: GASTRIC ULCER HAEMORRHAGE
     Dosage: 20 mg, 2x/day
     Dates: start: 200401, end: 2004
  2. PROTONIX [Suspect]
     Indication: GASTROINTESTINAL ULCER HAEMORRHAGE
     Dosage: 40 mg, daily
     Dates: start: 2004

REACTIONS (10)
  - Drug ineffective [Unknown]
  - Gastric cancer [Recovered/Resolved]
  - Gastrointestinal ulcer haemorrhage [Unknown]
  - Cerebrovascular accident [Recovered/Resolved]
  - Cerebrovascular accident [Recovered/Resolved]
  - Cerebrovascular accident [Recovered/Resolved]
  - Cerebrovascular accident [Recovered/Resolved]
  - Coronary artery occlusion [Unknown]
  - Arrhythmia [Not Recovered/Not Resolved]
  - Anxiety [Unknown]
